FAERS Safety Report 22901730 (Version 3)
Quarter: 2023Q4

REPORT INFORMATION
  Report Type: Spontaneous
  Country: AU (occurrence: AU)
  Receive Date: 20230904
  Receipt Date: 20231117
  Transmission Date: 20240109
  Serious: Yes (Hospitalization)
  Sender: FDA-Public Use
  Company Number: AU-KOREA IPSEN Pharma-2023-20340

PATIENT
  Age: 62 Year
  Sex: Female
  Weight: 48 kg

DRUGS (4)
  1. CABOMETYX [Suspect]
     Active Substance: CABOZANTINIB S-MALATE
     Indication: Leiomyosarcoma
     Dosage: 40 MG, QD
     Route: 048
     Dates: start: 20230719, end: 20230803
  2. CABOMETYX [Suspect]
     Active Substance: CABOZANTINIB S-MALATE
     Dosage: 40 MG, QOD (EVERY SECOND DAY)
     Route: 065
     Dates: start: 20230815
  3. CABOMETYX [Suspect]
     Active Substance: CABOZANTINIB S-MALATE
     Dosage: 40 MG, QOD (EVERY SECOND DAY)
     Route: 065
     Dates: start: 20230822
  4. CABOMETYX [Suspect]
     Active Substance: CABOZANTINIB S-MALATE
     Dosage: 20 MG, QD
     Route: 065
     Dates: start: 20230825

REACTIONS (16)
  - Fluid retention [Unknown]
  - Pyrexia [Unknown]
  - Pyrexia [Recovered/Resolved]
  - Pyrexia [Unknown]
  - Pyrexia [Unknown]
  - Oedema peripheral [Unknown]
  - Taste disorder [Unknown]
  - Dyspnoea [Unknown]
  - Nausea [Unknown]
  - Headache [Unknown]
  - Fatigue [Unknown]
  - Fatigue [Unknown]
  - Constipation [Unknown]
  - Dry mouth [Unknown]
  - Off label use [Unknown]
  - Off label use [Unknown]

NARRATIVE: CASE EVENT DATE: 20230719
